FAERS Safety Report 9244469 (Version 2)
Quarter: 2013Q2

REPORT INFORMATION
  Report Type: Spontaneous
  Country: SI (occurrence: SI)
  Receive Date: 20130422
  Receipt Date: 20130624
  Transmission Date: 20140414
  Serious: Yes (Other)
  Sender: FDA-Public Use
  Company Number: SI-AMGEN-SVNSP2013027170

PATIENT
  Age: 75 Year
  Sex: Male

DRUGS (3)
  1. PROLIA [Suspect]
     Indication: OSTEOPOROSIS
     Dosage: UNK UNK, Q6MO
  2. MEDROL                             /00049601/ [Concomitant]
  3. CORTICOSTEROIDS [Concomitant]
     Indication: GLOMERULONEPHRITIS

REACTIONS (1)
  - Tendon rupture [Unknown]
